FAERS Safety Report 6177908-2 (Version None)
Quarter: 2009Q2

REPORT INFORMATION
  Report Type: 
  Country: None (occurrence: None)
  Receive Date: 20090430
  Receipt Date: 20090415
  Transmission Date: 20091009
  Serious: Yes (Other)
  Sender: FDA-Public Use
  Company Number: 2009S1006759

PATIENT
  Age: 66 Year
  Sex: Male

DRUGS (5)
  1. AMIODARONE HCL [Suspect]
     Indication: VENTRICULAR TACHYCARDIA
     Dosage: ; INTRAVENOUS, ; ORAL, ; MG, ORAL
  2. BISOPROLOL FUMARATE [Suspect]
     Indication: VENTRICULAR TACHYCARDIA
  3. RAMIPRIL [Suspect]
     Indication: VENTRICULAR TACHYCARDIA
  4. MAGNESIUM (MAGNESIUM) [Suspect]
     Indication: VENTRICULAR TACHYCARDIA
     Dosage: ; INTRAVENOUS
     Route: 042
  5. MEXITIL [Suspect]
     Indication: VENTRICULAR TACHYCARDIA

REACTIONS (2)
  - DRUG INEFFECTIVE [None]
  - VENTRICULAR TACHYCARDIA [None]
